FAERS Safety Report 19599718 (Version 1)
Quarter: 2021Q3

REPORT INFORMATION
  Report Type: Spontaneous
  Country: US (occurrence: US)
  Receive Date: 20210722
  Receipt Date: 20210722
  Transmission Date: 20211014
  Serious: Yes (Hospitalization)
  Sender: FDA-Public Use
  Company Number: None

PATIENT
  Sex: Female

DRUGS (18)
  1. AMOX/K CLAV [Concomitant]
     Active Substance: AMOXICILLIN\CLAVULANATE POTASSIUM
  2. SODIUM CLOR NEB 7% [Concomitant]
  3. CIPROFLOXACIN. [Concomitant]
     Active Substance: CIPROFLOXACIN
  4. PREDNISONE. [Concomitant]
     Active Substance: PREDNISONE
  5. VORICONAZOLE. [Concomitant]
     Active Substance: VORICONAZOLE
  6. NUCALA [Suspect]
     Active Substance: MEPOLIZUMAB
     Indication: PULMONARY EOSINOPHILIA
     Route: 058
     Dates: start: 20180320
  7. BUDESONIDE. [Concomitant]
     Active Substance: BUDESONIDE
  8. HYDROXYCHLOR [Concomitant]
     Active Substance: HYDROXYCHLOROQUINE
  9. IPRATROPIUM/SOL ALBUTEROL [Concomitant]
  10. TOBRAMYCIN 300MG/5ML TOBI GEQ [Suspect]
     Active Substance: TOBRAMYCIN
     Indication: BRONCHIECTASIS
     Route: 055
     Dates: start: 20181120
  11. BACLOFEN. [Concomitant]
     Active Substance: BACLOFEN
  12. LEVALBUTEROL ACT [Concomitant]
  13. OXYCODONE [Concomitant]
     Active Substance: OXYCODONE
  14. MIRTAZAPINE. [Concomitant]
     Active Substance: MIRTAZAPINE
  15. OFLOXACIN. [Concomitant]
     Active Substance: OFLOXACIN
  16. TRAZODONE [Concomitant]
     Active Substance: TRAZODONE HYDROCHLORIDE
  17. DOXYCYC MONO [Concomitant]
     Active Substance: DOXYCYCLINE
  18. ZOLPIDEM [Concomitant]
     Active Substance: ZOLPIDEM TARTRATE

REACTIONS (2)
  - Hospitalisation [None]
  - Respiratory disorder [None]
